FAERS Safety Report 24452906 (Version 1)
Quarter: 2024Q4

REPORT INFORMATION
  Report Type: Spontaneous
  Country: US (occurrence: US)
  Receive Date: 20241017
  Receipt Date: 20241017
  Transmission Date: 20250115
  Serious: No
  Sender: SUNOVION
  Company Number: US-UROVANT SCIENCES GMBH-202405-URV-000697

PATIENT
  Sex: Female
  Weight: 74.376 kg

DRUGS (1)
  1. GEMTESA [Suspect]
     Active Substance: VIBEGRON
     Indication: Micturition urgency
     Dosage: UNK
     Route: 065

REACTIONS (5)
  - Dyspnoea [Unknown]
  - Feeling abnormal [Unknown]
  - Chest discomfort [Unknown]
  - Wrong technique in product usage process [Unknown]
  - Intentional underdose [Unknown]
